FAERS Safety Report 19788377 (Version 4)
Quarter: 2022Q2

REPORT INFORMATION
  Report Type: Report from Study
  Country: AU (occurrence: None)
  Receive Date: 20210903
  Receipt Date: 20220418
  Transmission Date: 20220721
  Serious: Yes (Hospitalization)
  Sender: FDA-Public Use
  Company Number: AU-EISAI MEDICAL RESEARCH-EC-2021-098215

PATIENT
  Age: 77 Year
  Sex: Female
  Weight: 67.3 kg

DRUGS (13)
  1. LENVATINIB [Suspect]
     Active Substance: LENVATINIB
     Indication: Renal cell carcinoma
     Route: 048
     Dates: start: 20210618, end: 20210816
  2. PEMBROLIZUMAB [Suspect]
     Active Substance: PEMBROLIZUMAB
     Indication: Renal cell carcinoma
     Route: 041
     Dates: start: 20210618, end: 20210618
  3. PEMBROLIZUMAB [Suspect]
     Active Substance: PEMBROLIZUMAB
     Route: 041
     Dates: start: 20210730, end: 20210730
  4. PEMBROLIZUMAB [Suspect]
     Active Substance: PEMBROLIZUMAB
     Route: 041
     Dates: start: 20210910
  5. PROLIA [Concomitant]
     Active Substance: DENOSUMAB
     Route: 058
     Dates: start: 201001
  6. EUTROXSIG [Concomitant]
     Active Substance: LEVOTHYROXINE SODIUM
     Dates: start: 201101
  7. NEXIUM [Concomitant]
     Active Substance: ESOMEPRAZOLE MAGNESIUM
     Dates: start: 201101
  8. ATORVASTATIN CALCIUM [Concomitant]
     Active Substance: ATORVASTATIN CALCIUM
     Dates: start: 201601, end: 20211022
  9. AMLODIPINE BESYLATE\PERINDOPRIL ARGININE [Concomitant]
     Active Substance: AMLODIPINE BESYLATE\PERINDOPRIL ARGININE
     Dates: start: 20210723
  10. VITAMIN D NOS [Concomitant]
     Active Substance: VITAMIN D NOS
     Dates: start: 20210723
  11. ODAPLIX SR [Concomitant]
     Dates: start: 20210812, end: 20211126
  12. XALATAN [Concomitant]
     Active Substance: LATANOPROST
     Dates: start: 20140101
  13. GASTROSTOP [Concomitant]
     Dates: start: 20210626

REACTIONS (1)
  - Cerebrovascular accident [Recovered/Resolved]

NARRATIVE: CASE EVENT DATE: 20210816
